FAERS Safety Report 18154169 (Version 1)
Quarter: 2020Q3

REPORT INFORMATION
  Report Type: Spontaneous
  Country: ES (occurrence: ES)
  Receive Date: 20200816
  Receipt Date: 20200816
  Transmission Date: 20201103
  Serious: Yes (Other)
  Sender: FDA-Public Use
  Company Number: ES-ABBVIE-20K-144-3524585-00

PATIENT
  Age: 75 Year
  Sex: Female

DRUGS (6)
  1. SINEMET [Suspect]
     Active Substance: CARBIDOPA\LEVODOPA
     Indication: ON AND OFF PHENOMENON
     Dosage: UNKNOWN
     Route: 065
  2. ONGENTYS [Suspect]
     Active Substance: OPICAPONE
     Indication: ON AND OFF PHENOMENON
     Dosage: UNKNOWN
     Route: 065
  3. DUODOPA [Suspect]
     Active Substance: CARBIDOPA\LEVODOPA
     Indication: ON AND OFF PHENOMENON
     Dosage: UNKNOWN
     Route: 050
  4. AMANTADINE. [Suspect]
     Active Substance: AMANTADINE HYDROCHLORIDE
     Indication: ON AND OFF PHENOMENON
     Dosage: UNKNOWN
     Route: 065
  5. DUODOPA [Suspect]
     Active Substance: CARBIDOPA\LEVODOPA
  6. XADAGO [Suspect]
     Active Substance: SAFINAMIDE MESYLATE
     Indication: ON AND OFF PHENOMENON
     Dosage: UNKNOWN
     Route: 065

REACTIONS (16)
  - Delusion [Unknown]
  - Gait disturbance [Unknown]
  - Muscle rigidity [Unknown]
  - Confusional state [Unknown]
  - Dysphonia [Unknown]
  - Balance disorder [Unknown]
  - Saliva altered [Unknown]
  - Therapeutic response shortened [Unknown]
  - Hallucination [Unknown]
  - Constipation [Unknown]
  - Depression [Unknown]
  - Anxiety [Unknown]
  - Fatigue [Unknown]
  - Bradykinesia [Unknown]
  - Dementia [Unknown]
  - Dysphagia [Unknown]
